FAERS Safety Report 9495599 (Version 1)
Quarter: 2013Q3

REPORT INFORMATION
  Report Type: Spontaneous
  Country: DE (occurrence: DE)
  Receive Date: 20130903
  Receipt Date: 20130903
  Transmission Date: 20140515
  Serious: Yes (Other)
  Sender: FDA-Public Use
  Company Number: DE-BAUSCH-BL-2013-004797

PATIENT
  Age: 75 Year
  Sex: Female

DRUGS (2)
  1. TIM-OPHTAL 0.5% [Suspect]
     Indication: GLAUCOMA
     Route: 047
  2. TIMOLOL [Suspect]
     Route: 047

REACTIONS (6)
  - Tinnitus [Recovered/Resolved]
  - Pain [Recovered/Resolved]
  - Hypoacusis [Recovered/Resolved]
  - Sleep disorder due to a general medical condition [Recovered/Resolved]
  - Malaise [Recovered/Resolved]
  - Nausea [Recovered/Resolved]
